FAERS Safety Report 7623567-9 (Version None)
Quarter: 2011Q3

REPORT INFORMATION
  Report Type: 
  Country: None (occurrence: None)
  Receive Date: 20110719
  Receipt Date: 20110719
  Transmission Date: 20111222
  Serious: Yes (Other)
  Sender: FDA-Public Use
  Company Number: None

PATIENT
  Age: 63 Year
  Sex: Female
  Weight: 81.6475 kg

DRUGS (2)
  1. TRILIPIX [Suspect]
     Indication: BLOOD TRIGLYCERIDES INCREASED
     Dosage: 1 CAPSULE EVERY DAY
     Dates: start: 20110601
  2. TRILIPIX [Suspect]
     Indication: BLOOD TRIGLYCERIDES INCREASED
     Dosage: 1 CAPSULE EVERY DAY
     Dates: start: 20101201

REACTIONS (3)
  - VITREOUS FLOATERS [None]
  - PHOTOPSIA [None]
  - VITREOUS DETACHMENT [None]
